FAERS Safety Report 8611805-5 (Version None)
Quarter: 2012Q3

REPORT INFORMATION
  Report Type: 
  Country: None (occurrence: None)
  Receive Date: 20120822
  Receipt Date: 20120817
  Transmission Date: 20120928
  Serious: No
  Sender: FDA-Public Use
  Company Number: US-PFIZER INC-2012202387

PATIENT

DRUGS (2)
  1. RELPAX [Suspect]
     Dosage: 20 MG, UNK
  2. TREXIMET [Suspect]
     Dosage: UNK

REACTIONS (5)
  - DRUG INEFFECTIVE [None]
  - ANXIETY [None]
  - INCORRECT DOSE ADMINISTERED [None]
  - FEELING ABNORMAL [None]
  - FLUSHING [None]
